FAERS Safety Report 9311839 (Version 2)
Quarter: 2013Q2

REPORT INFORMATION
  Report Type: Spontaneous
  Country: SZ (occurrence: SZ)
  Receive Date: 20130528
  Receipt Date: 20130603
  Transmission Date: 20140414
  Serious: Yes (Hospitalization)
  Sender: FDA-Public Use
  Company Number: SZ-SANOFI-AVENTIS-2013SA053196

PATIENT
  Age: 67 Year
  Sex: Female

DRUGS (7)
  1. TAXOTERE [Suspect]
     Indication: BREAST CANCER
     Dates: start: 20120614, end: 20120614
  2. MINIRIN [Suspect]
     Indication: DIABETES INSIPIDUS
     Route: 045
  3. FLUCONAZOLE [Suspect]
     Route: 048
  4. NEUPOGEN [Concomitant]
     Dosage: DOSAGE WAS 30 MILLION IU QD, SUBCUTANEOUS
  5. METOCLOPRAMIDE HYDROCHLORIDE [Concomitant]
  6. BACTRIM [Concomitant]
     Route: 048
  7. IMOVANE [Concomitant]
     Route: 048

REACTIONS (3)
  - Grand mal convulsion [Recovered/Resolved]
  - Hyponatraemia [Recovered/Resolved]
  - Drug interaction [Recovered/Resolved]
